FAERS Safety Report 8669867 (Version 3)
Quarter: 2012Q4

REPORT INFORMATION
  Report Type: 
  Country: US (occurrence: US)
  Receive Date: 20120718
  Receipt Date: 20121001
  Transmission Date: 20130627
  Serious: Yes (Death, Other)
  Sender: FDA-Public Use
  Company Number: US-INCYTE CORPORATION-2012IN001277

PATIENT
  Age: 85 Year
  Sex: Male
  Weight: 58.05 kg

DRUGS (9)
  1. JAKAFI [Suspect]
     Indication: MYELOFIBROSIS
     Dosage: 20 mg, bid
     Route: 048
     Dates: start: 20111231
  2. JAKAFI [Suspect]
     Dosage: 10 mg, bid
     Route: 048
     Dates: end: 201204
  3. JAKAFI [Suspect]
     Dosage: UNK
     Dates: start: 201204
  4. BABY ASPIRIN [Concomitant]
     Dosage: 81 mg, qd
     Route: 048
  5. CALCIUM CITRATE [Concomitant]
     Route: 048
  6. MULTIVITAMINS, PLAIN [Concomitant]
     Dosage: One tablet, qd
  7. TAMSULOSIN HYDROCHLORIDE [Concomitant]
     Dosage: 0.4 mg, qd
     Route: 048
  8. VITAMIN C [Concomitant]
     Route: 048
  9. CHOLECALCIFEROL [Concomitant]
     Dosage: 400 units,
     Route: 048

REACTIONS (7)
  - Myocardial infarction [Fatal]
  - Haemoglobin decreased [Not Recovered/Not Resolved]
  - Pruritus [Recovered/Resolved]
  - Dyspnoea exertional [Recovered/Resolved]
  - Haematocrit decreased [None]
  - Red blood cell count decreased [None]
  - Sudden death [None]
